FAERS Safety Report 4699625-8 (Version None)
Quarter: 2005Q2

REPORT INFORMATION
  Report Type: 
  Country: None (occurrence: None)
  Receive Date: 20050623
  Receipt Date: 20050610
  Transmission Date: 20051028
  Serious: Yes (Hospitalization)
  Sender: FDA-Public Use
  Company Number: 2005087506

PATIENT
  Age: 67 Year
  Sex: Female

DRUGS (9)
  1. ZOLOFT [Suspect]
     Indication: ILL-DEFINED DISORDER
     Dosage: 50 MG (1 IN 1 D), ORAL
     Route: 048
     Dates: end: 20050417
  2. BREXIN (PIROXICAM BETADEX) [Suspect]
     Indication: ILL-DEFINED DISORDER
     Dosage: 20 MG, ORAL
     Route: 048
     Dates: start: 20050115, end: 20050417
  3. ACETAMINOPHEN [Suspect]
     Indication: ILL-DEFINED DISORDER
     Dosage: 3 GRAM (1 IN 1 D), ORAL
     Route: 048
     Dates: end: 20050417
  4. HEXAQUINE (NIAOULI OIL, QUININE BENZOATE, THIAMINE HYDROCHLORIDE) [Suspect]
     Indication: ILL-DEFINED DISORDER
     Dosage: ORAL
     Route: 048
  5. OXAZEPAM [Suspect]
     Indication: ILL-DEFINED DISORDER
     Dosage: ORAL
     Route: 048
     Dates: end: 20050417
  6. ENALAPRIL MALEATE [Suspect]
     Indication: ILL-DEFINED DISORDER
     Dosage: 20 MG, ORAL
     Route: 048
     Dates: end: 20050417
  7. DAFLON (DIOSMIN) [Concomitant]
  8. LEVOTHYROXINE SODIUM [Concomitant]
  9. CARTEOL (BENZALKONIUM CHLORIDE, CARTEOLOL HYDROCHLORIDE) [Concomitant]

REACTIONS (2)
  - CYTOLYTIC HEPATITIS [None]
  - HEPATOTOXICITY [None]
